FAERS Safety Report 4552129-5 (Version None)
Quarter: 2005Q1

REPORT INFORMATION
  Report Type: 
  Country: None (occurrence: None)
  Receive Date: 20050112
  Receipt Date: 20041231
  Transmission Date: 20050727
  Serious: Yes (Hospitalization)
  Sender: FDA-Public Use
  Company Number: 2005001892

PATIENT
  Age: 34 Year
  Sex: Female
  Weight: 60.782 kg

DRUGS (5)
  1. BENADRYL [Suspect]
     Indication: HYPERSENSITIVITY
     Dosage: 2-3 TABLETS DAILY, ORAL
     Route: 048
     Dates: start: 20041216, end: 20041229
  2. RABEPRAZOLE SODIUM [Suspect]
  3. DRUG,UNSPECIFIED [Suspect]
     Dosage: INHALATION
     Route: 055
  4. CETIRIZINE HCL [Concomitant]
  5. MONTELUKAST SODIUM (MONTELUKAST SODIUM) [Concomitant]

REACTIONS (2)
  - ANAPHYLACTIC SHOCK [None]
  - MEDICATION ERROR [None]
